FAERS Safety Report 5048331-9 (Version None)
Quarter: 2006Q3

REPORT INFORMATION
  Report Type: 
  Country: None (occurrence: None)
  Receive Date: 20060711
  Receipt Date: 20060706
  Transmission Date: 20061208
  Serious: Yes (Hospitalization)
  Sender: FDA-Public Use
  Company Number: JP-BOEHRINGER INGELHEIM PHARMACEUTICALS, INC.-2006-BP-07754NB

PATIENT
  Age: 70 Year
  Sex: Male

DRUGS (5)
  1. SPIRIVA [Suspect]
     Indication: CHRONIC OBSTRUCTIVE PULMONARY DISEASE
     Route: 055
     Dates: start: 20060414, end: 20060704
  2. ALDACTONE [Concomitant]
     Route: 048
  3. FLUTIDE [Concomitant]
     Route: 055
  4. SEREVENT [Concomitant]
     Route: 055
  5. KLARICID [Concomitant]
     Route: 048

REACTIONS (2)
  - HAEMODIALYSIS [None]
  - POSTRENAL FAILURE [None]
